FAERS Safety Report 18085103 (Version 2)
Quarter: 2020Q3

REPORT INFORMATION
  Report Type: Spontaneous
  Country: FR (occurrence: FR)
  Receive Date: 20200728
  Receipt Date: 20200804
  Transmission Date: 20201103
  Serious: Yes (Other)
  Sender: FDA-Public Use
  Company Number: FR-MYLANLABS-2020M1068048

PATIENT
  Age: 22 Month
  Sex: Female
  Weight: 14.8 kg

DRUGS (8)
  1. TOLVAPTAN [Interacting]
     Active Substance: TOLVAPTAN
     Dosage: 5 MILLIGRAM, QD,0.33 MG/KG/DAY
     Route: 065
  2. AMILORIDE [Concomitant]
     Active Substance: AMILORIDE
     Indication: NEPHROTIC SYNDROME
     Dosage: 1 MILLIGRAM/KILOGRAM, QD
     Route: 065
  3. TACROLIMUS. [Concomitant]
     Active Substance: TACROLIMUS
     Indication: NEPHROTIC SYNDROME
     Dosage: UNK
     Route: 048
  4. FUROSEMIDE. [Suspect]
     Active Substance: FUROSEMIDE
     Indication: NEPHROTIC SYNDROME
     Dosage: 5 MILLIGRAM/KILOGRAM, QD
     Route: 065
  5. TOLVAPTAN [Interacting]
     Active Substance: TOLVAPTAN
     Dosage: 40 MILLIGRAM,PROGRESSIVELY INCREASED TO 40 MG OVER 4 DAYS
     Route: 065
  6. TOLVAPTAN [Interacting]
     Active Substance: TOLVAPTAN
     Indication: HYPONATRAEMIA
     Dosage: TOLVAPTAN WAS PROGRESSIVELY DECREASED BY 1 MG/KG/DAY EVERY 2 WEEKS
     Route: 065
  7. AMLODIPINE [Concomitant]
     Active Substance: AMLODIPINE BESYLATE
     Indication: HYPERTENSION
     Dosage: 0.5 MILLIGRAM/KILOGRAM, QD
     Route: 065
  8. RITUXIMAB. [Concomitant]
     Active Substance: RITUXIMAB
     Indication: NEPHROTIC SYNDROME
     Dosage: UNK
     Route: 065

REACTIONS (4)
  - Drug ineffective [Recovering/Resolving]
  - Product use issue [Unknown]
  - Therapeutic product effect decreased [Recovering/Resolving]
  - Drug interaction [Recovering/Resolving]
